FAERS Safety Report 9732210 (Version 2)
Quarter: 2014Q1

REPORT INFORMATION
  Report Type: Spontaneous
  Country: JP (occurrence: JP)
  Receive Date: 20131205
  Receipt Date: 20140130
  Transmission Date: 20141002
  Serious: Yes (Other)
  Sender: FDA-Public Use
  Company Number: JP-PFIZER INC-2013339387

PATIENT
  Age: 7 Month
  Sex: Male
  Weight: 7.5 kg

DRUGS (2)
  1. AZITHROMYCIN [Suspect]
     Dosage: UNK
     Dates: start: 20121019, end: 20121021
  2. VICCILLIN [Suspect]
     Indication: BACTERIAL INFECTION
     Dosage: 500 MG, 3X/DAY
     Route: 042
     Dates: start: 20121019, end: 20121021

REACTIONS (2)
  - Hepatic function abnormal [Recovered/Resolved]
  - Rash papular [Recovered/Resolved]
